FAERS Safety Report 4736495-3 (Version None)
Quarter: 2005Q3

REPORT INFORMATION
  Report Type: 
  Country: None (occurrence: None)
  Receive Date: 20050802
  Receipt Date: 20050727
  Transmission Date: 20060218
  Serious: Yes (Hospitalization)
  Sender: FDA-Public Use
  Company Number: TPG2005A00249

PATIENT
  Age: 48 Year
  Sex: Male

DRUGS (5)
  1. ACTOS [Suspect]
     Indication: DIABETES MELLITUS NON-INSULIN-DEPENDENT
     Dosage: PER ORAL
     Route: 048
  2. METFORMIN HCL [Concomitant]
  3. CARDIAC THERAPY (CARDIAC THERAPY) [Concomitant]
  4. ANTI-LIPIDE (LIPOREDUCT) [Concomitant]
  5. CALCIUM CHANNEL BLOCKERS (CALCIUM CHANNEL BLOCKERS) [Concomitant]

REACTIONS (1)
  - CHEST DISCOMFORT [None]
